FAERS Safety Report 6436724-4 (Version None)
Quarter: 2009Q4

REPORT INFORMATION
  Report Type: 
  Country: None (occurrence: None)
  Receive Date: 20091110
  Receipt Date: 20080422
  Transmission Date: 20100525
  Serious: No
  Sender: FDA-Public Use
  Company Number: AEUSA200800103

PATIENT
  Age: 75 Year
  Sex: Female

DRUGS (5)
  1. GAMUNEX [Suspect]
     Indication: MYASTHENIA GRAVIS
     Dosage: IV
     Route: 042
  2. GAMUNEX [Suspect]
  3. GAMUNEX [Suspect]
  4. GAMUNEX [Suspect]
  5. GAMUNEX [Suspect]

REACTIONS (1)
  - DRUG INEFFECTIVE [None]
